FAERS Safety Report 24088647 (Version 2)
Quarter: 2024Q3

REPORT INFORMATION
  Report Type: Report from Study
  Country: US (occurrence: US)
  Receive Date: 20240715
  Receipt Date: 20240722
  Transmission Date: 20241017
  Serious: Yes (Disabling)
  Sender: ABBVIE
  Company Number: US-ABBVIE-5836262

PATIENT
  Age: 60 Year
  Sex: Male

DRUGS (1)
  1. HUMIRA [Suspect]
     Active Substance: ADALIMUMAB
     Indication: Ankylosing spondylitis
     Dosage: CITRATE FREE
     Route: 058
     Dates: start: 20200701, end: 202401

REACTIONS (5)
  - Gait inability [Not Recovered/Not Resolved]
  - Pain in extremity [Recovering/Resolving]
  - Muscle atrophy [Recovering/Resolving]
  - Nerve injury [Recovering/Resolving]
  - Sitting disability [Unknown]

NARRATIVE: CASE EVENT DATE: 20240101
